FAERS Safety Report 12166913 (Version 1)
Quarter: 2016Q1

REPORT INFORMATION
  Report Type: Spontaneous
  Country: GB (occurrence: NL)
  Receive Date: 20160310
  Receipt Date: 20160310
  Transmission Date: 20160526
  Serious: Yes (Hospitalization)
  Sender: FDA-Public Use
  Company Number: NL-BAUSCH-BL-2016-005466

PATIENT
  Age: 64 Year
  Sex: Male

DRUGS (3)
  1. FOLINIC ACID [Suspect]
     Active Substance: LEUCOVORIN
     Indication: COLON CANCER STAGE III
     Route: 065
  2. FLUOROURACIL. [Suspect]
     Active Substance: FLUOROURACIL
     Indication: COLON CANCER STAGE III
     Route: 065
  3. OXALIPLATIN. [Suspect]
     Active Substance: OXALIPLATIN
     Indication: COLON CANCER STAGE III
     Route: 065

REACTIONS (3)
  - Interventricular septum rupture [Recovering/Resolving]
  - Left ventricular failure [Recovering/Resolving]
  - Right ventricular failure [Recovering/Resolving]
